FAERS Safety Report 8202774-0 (Version None)
Quarter: 2012Q1

REPORT INFORMATION
  Report Type: 
  Country: None (occurrence: None)
  Receive Date: 20120312
  Receipt Date: 20120312
  Transmission Date: 20120608
  Serious: No
  Sender: FDA-Public Use
  Company Number: None

PATIENT
  Sex: Female
  Weight: 148.77 kg

DRUGS (2)
  1. FEXOFENADINE HYDROCHLORIDE [Concomitant]
     Dates: start: 20120307, end: 20120308
  2. FEXOFENADINE HYDROCHLORIDE [Suspect]
     Indication: MULTIPLE ALLERGIES
     Dates: start: 20120307, end: 20120308

REACTIONS (4)
  - FIBROMYALGIA [None]
  - INSOMNIA [None]
  - FEELING JITTERY [None]
  - PANIC ATTACK [None]
